FAERS Safety Report 11374327 (Version 1)
Quarter: 2015Q3

REPORT INFORMATION
  Report Type: Spontaneous
  Country: US (occurrence: None)
  Receive Date: 20150804
  Receipt Date: 20150804
  Transmission Date: 20151125
  Serious: Yes (Other)
  Sender: FDA-Public Use
  Company Number: US-SEPTODONT-201402226

PATIENT
  Age: 54 Year
  Sex: Female
  Weight: 63 kg

DRUGS (1)
  1. SEPTOCAINE AND EPINEPHRINE [Suspect]
     Active Substance: ARTICAINE HYDROCHLORIDE\EPINEPHRINE BITARTRATE
     Indication: LOCAL ANAESTHESIA
     Dosage: 2.7 ML TOTAL
     Route: 004
     Dates: start: 20130417, end: 20130417

REACTIONS (3)
  - Delayed recovery from anaesthesia [None]
  - Anaesthetic complication [None]
  - Hypoaesthesia oral [None]

NARRATIVE: CASE EVENT DATE: 20130417
